FAERS Safety Report 4754991-X (Version None)
Quarter: 2005Q3

REPORT INFORMATION
  Report Type: 
  Country: None (occurrence: None)
  Receive Date: 20050825
  Receipt Date: 20050812
  Transmission Date: 20060218
  Serious: Yes (Hospitalization)
  Sender: FDA-Public Use
  Company Number: T05-AUT-02112-01

PATIENT
  Age: 39 Year
  Sex: Female
  Weight: 67 kg

DRUGS (2)
  1. CITALOPRAM (UNBLINDED) (CITALOPRAM) [Suspect]
     Indication: MAJOR DEPRESSION
     Dates: start: 20050326, end: 20050511
  2. PROGYNOVA (ESTRADIOL VALERATE) [Concomitant]

REACTIONS (1)
  - EPILEPSY [None]
